FAERS Safety Report 15286377 (Version 1)
Quarter: 2018Q3

REPORT INFORMATION
  Report Type: Report from Study
  Country: JP (occurrence: JP)
  Receive Date: 20180816
  Receipt Date: 20180816
  Transmission Date: 20181010
  Serious: Yes (Hospitalization)
  Sender: FDA-Public Use
  Company Number: JP-CELGENEUS-JPN-2014110546

PATIENT
  Age: 56 Year
  Sex: Female

DRUGS (1)
  1. VIDAZA [Suspect]
     Active Substance: AZACITIDINE
     Indication: MYELODYSPLASTIC SYNDROME
     Route: 041
     Dates: start: 20140114, end: 20140123

REACTIONS (2)
  - Back pain [Recovered/Resolved]
  - Bone marrow necrosis [Recovered/Resolved]

NARRATIVE: CASE EVENT DATE: 20140125
